FAERS Safety Report 12950935 (Version 1)
Quarter: 2016Q4

REPORT INFORMATION
  Report Type: Report from Study
  Country: None (occurrence: BR)
  Receive Date: 20161116
  Receipt Date: 20161116
  Transmission Date: 20170207
  Serious: Yes (Hospitalization, Other)
  Sender: FDA-Public Use
  Company Number: BR-ABBVIE-16P-020-1778660-00

PATIENT
  Age: 2 Month
  Sex: Male
  Weight: 4.2 kg

DRUGS (6)
  1. SYNAGIS [Suspect]
     Active Substance: PALIVIZUMAB
     Indication: HEART DISEASE CONGENITAL
     Route: 030
     Dates: start: 20160805
  2. PROPRANOLOL [Concomitant]
     Active Substance: PROPRANOLOL\PROPRANOLOL HYDROCHLORIDE
     Indication: HEART DISEASE CONGENITAL
     Dosage: FORM OF ADMINISTRATION : LIQUID
     Route: 048
     Dates: start: 20160704
  3. SPIRONOLACTONE. [Concomitant]
     Active Substance: SPIRONOLACTONE
     Indication: LUNG DISORDER
     Dosage: FORM OF ADMINISTRATION : LIQUID
     Route: 048
     Dates: start: 20160704
  4. RETINOL ACETATE/CHOLECALCIFEROL (AD-TIL) [Concomitant]
     Indication: VITAMIN D DEFICIENCY
     Route: 048
     Dates: start: 20160704
  5. FERROUS SULFATE. [Concomitant]
     Active Substance: FERROUS SULFATE
     Indication: MINERAL SUPPLEMENTATION
     Route: 048
     Dates: start: 20160704
  6. FUROSEMIDE. [Concomitant]
     Active Substance: FUROSEMIDE
     Indication: HEART DISEASE CONGENITAL
     Dosage: FORM OF ADMINISTRATION : LIQUID
     Route: 048

REACTIONS (8)
  - Wheezing [Recovering/Resolving]
  - Pneumonia [Recovering/Resolving]
  - Developmental delay [Unknown]
  - Hospitalisation [Unknown]
  - Renal disorder [Unknown]
  - Dyspnoea [Recovering/Resolving]
  - Anaemia [Recovered/Resolved]
  - Fatigue [Recovering/Resolving]

NARRATIVE: CASE EVENT DATE: 201610
